FAERS Safety Report 14663286 (Version 2)
Quarter: 2018Q2

REPORT INFORMATION
  Report Type: Spontaneous
  Country: TR (occurrence: TR)
  Receive Date: 20180321
  Receipt Date: 20180508
  Transmission Date: 20180711
  Serious: Yes (Other)
  Sender: FDA-Public Use
  Company Number: TR-SUN PHARMACEUTICAL INDUSTRIES LTD-2018R1-167566

PATIENT
  Age: 16 Day

DRUGS (2)
  1. HYDROCORTISONE. [Suspect]
     Active Substance: HYDROCORTISONE
     Indication: 21-HYDROXYLASE DEFICIENCY
     Route: 065
  2. FLUDROCORTISON [Suspect]
     Active Substance: FLUDROCORTISONE
     Indication: 21-HYDROXYLASE DEFICIENCY
     Route: 065

REACTIONS (2)
  - Vaginal haemorrhage [Recovered/Resolved]
  - Ovarian cyst [Recovered/Resolved]
